FAERS Safety Report 16050053 (Version 1)
Quarter: 2019Q1

REPORT INFORMATION
  Report Type: Other
  Country: US (occurrence: US)
  Receive Date: 20190308
  Receipt Date: 20190308
  Transmission Date: 20190418
  Serious: Yes (Hospitalization)
  Sender: FDA-Public Use
  Company Number: US-LAURUS LABS LIMITED-201900157

PATIENT
  Age: 35 Year
  Sex: Female

DRUGS (3)
  1. SIMVASTATIN. [Concomitant]
     Active Substance: SIMVASTATIN
     Route: 065
  2. INSULIN [Concomitant]
     Active Substance: INSULIN NOS
     Route: 065
  3. METFORMIN [Suspect]
     Active Substance: METFORMIN HYDROCHLORIDE
     Indication: TYPE 2 DIABETES MELLITUS
     Route: 065

REACTIONS (16)
  - Confusional state [Recovering/Resolving]
  - Slow response to stimuli [Recovering/Resolving]
  - Haemodynamic instability [Unknown]
  - Shock [Unknown]
  - Hypothermia [Recovering/Resolving]
  - Lactic acidosis [Recovering/Resolving]
  - Nausea [Recovering/Resolving]
  - Somnolence [Recovering/Resolving]
  - Pulseless electrical activity [Unknown]
  - Fatigue [Recovering/Resolving]
  - Tachycardia [Recovering/Resolving]
  - Tachypnoea [Recovering/Resolving]
  - Vomiting [Recovering/Resolving]
  - Mental status changes [Recovering/Resolving]
  - Hypotension [Recovering/Resolving]
  - Abdominal pain [Recovering/Resolving]
